FAERS Safety Report 6782597-X (Version None)
Quarter: 2010Q2

REPORT INFORMATION
  Report Type: 
  Country: None (occurrence: None)
  Receive Date: 20100621
  Receipt Date: 20100611
  Transmission Date: 20101027
  Serious: Yes (Other)
  Sender: FDA-Public Use
  Company Number: LB-WATSON-2010-08208

PATIENT
  Age: 66 Year
  Sex: Female

DRUGS (1)
  1. FLUVOXAMINE (WATSON LABORATORIES) [Suspect]
     Indication: HEADACHE
     Dosage: UNK

REACTIONS (2)
  - ANGLE CLOSURE GLAUCOMA [None]
  - CONDITION AGGRAVATED [None]
